FAERS Safety Report 17831746 (Version 2)
Quarter: 2020Q2

REPORT INFORMATION
  Report Type: Spontaneous
  Country: US (occurrence: US)
  Receive Date: 20200527
  Receipt Date: 20200608
  Transmission Date: 20200714
  Serious: Yes (Other)
  Sender: FDA-Public Use
  Company Number: US-ACTELION-A-NJ2020-205524

PATIENT
  Age: 74 Year
  Sex: Male
  Weight: 81.63 kg

DRUGS (2)
  1. UPTRAVI [Suspect]
     Active Substance: SELEXIPAG
     Indication: PULMONARY ARTERIAL HYPERTENSION
     Dosage: 1600 MCG, BID
     Route: 048
  2. UPTRAVI [Suspect]
     Active Substance: SELEXIPAG
     Dosage: UNK
     Route: 048

REACTIONS (3)
  - Stent placement [Recovered/Resolved]
  - Aortic aneurysm [Recovered/Resolved]
  - Aortic aneurysm repair [Recovered/Resolved]

NARRATIVE: CASE EVENT DATE: 202005
